FAERS Safety Report 14038854 (Version 2)
Quarter: 2017Q4

REPORT INFORMATION
  Report Type: Report from Study
  Country: DK (occurrence: DK)
  Receive Date: 20171004
  Receipt Date: 20171014
  Transmission Date: 20180321
  Serious: Yes (Hospitalization)
  Sender: FDA-Public Use
  Company Number: DK-TAKEDA-2017TUS020190

PATIENT
  Age: 29 Year
  Sex: Male
  Weight: 68.7 kg

DRUGS (3)
  1. MLN0002 [Suspect]
     Active Substance: VEDOLIZUMAB
     Indication: COLITIS ULCERATIVE
     Dosage: UNK
     Route: 042
     Dates: start: 20170302
  2. DICILLIN                           /00063302/ [Concomitant]
     Active Substance: DICLOXACILLIN SODIUM
     Indication: FOLLICULITIS
     Dosage: 500 MG, TID
     Route: 048
     Dates: start: 20170913, end: 20170917
  3. PLACEBO [Suspect]
     Active Substance: UNSPECIFIED INGREDIENT
     Indication: COLITIS ULCERATIVE
     Dosage: UNK
     Route: 058
     Dates: start: 20170412

REACTIONS (2)
  - Blood creatine phosphokinase increased [Recovered/Resolved]
  - Colitis ulcerative [Unknown]

NARRATIVE: CASE EVENT DATE: 20170918
